FAERS Safety Report 7599395-X (Version None)
Quarter: 2011Q3

REPORT INFORMATION
  Report Type: 
  Country: None (occurrence: None)
  Receive Date: 20110711
  Receipt Date: 20110629
  Transmission Date: 20111222
  Serious: Yes (Death, Other)
  Sender: FDA-Public Use
  Company Number: US-BAYER-200940134NA

PATIENT
  Age: 77 Year
  Sex: Female
  Weight: 67 kg

DRUGS (27)
  1. ACETYLSALICYLIC ACID SRT [Concomitant]
     Dosage: LONG TERM USE
     Route: 048
  2. PROTONIX [Concomitant]
     Dosage: 10 MG / DAILY LONG TERM USE
     Route: 048
  3. NESIRITIDE [Concomitant]
     Dosage: 0.5 MG INJECTION
     Dates: start: 20060128
  4. GLIPIZIDE [Concomitant]
     Dosage: LONG TERM USE
     Route: 048
  5. LOTREL [Concomitant]
     Dosage: 10/20 DAILY
     Route: 048
  6. CLONIDINE [Concomitant]
     Dosage: DAILY DOSE .1 MG
     Route: 048
  7. LASIX [Concomitant]
     Dosage: 60 MG, UNK
     Route: 042
     Dates: start: 20050727
  8. LASIX [Concomitant]
     Dosage: LONG TERM USE
     Route: 048
  9. ATENOLOL [Concomitant]
     Dosage: 50 MG, BID, LONG TERM USE
     Route: 048
  10. NITROGLYCERIN [Concomitant]
     Dosage: LONG TERM USE
     Route: 060
  11. NITROGLYCERIN [Concomitant]
     Dosage: UNK
     Dates: start: 20050727
  12. TRASYLOL [Suspect]
     Indication: IMPLANTABLE DEFIBRILLATOR INSERTION
     Dosage: UNK
     Route: 042
     Dates: start: 20060213
  13. TRASYLOL [Suspect]
     Indication: CORONARY ARTERY BYPASS
  14. DIOVAN [Concomitant]
     Dosage: 160 MG, BID, LONG TERM USE
     Route: 048
  15. ENOXAPARIN [Concomitant]
     Dosage: 40 MG INJECTION
     Dates: start: 20050912
  16. REGULAR INSULIN [Concomitant]
     Dosage: SLIDING SCALE
     Route: 058
  17. AMIODARONE HCL [Concomitant]
     Dosage: LONG TERM USE
     Route: 048
  18. BENAZEPRIL HYDROCHLORIDE [Concomitant]
     Route: 048
  19. LIPITOR [Concomitant]
     Dosage: LONG TERM USE20 MG, HS
     Route: 048
  20. CONTRAST MEDIA [Concomitant]
     Indication: CATHETERISATION CARDIAC
     Dosage: UNK
     Dates: start: 20060131
  21. PLAVIX [Concomitant]
     Dosage: LONG TERM USE
     Route: 048
  22. AMLODIPINE [Concomitant]
     Dosage: LONG TERM USE
  23. LEVAQUIN [Concomitant]
     Indication: PNEUMONIA
     Dosage: UNK
     Dates: start: 20060222
  24. CEFTRIAXONE [Concomitant]
     Indication: PNEUMONIA
     Dosage: UNK
     Dates: start: 20060222
  25. ACTOS [Concomitant]
     Dosage: 15 MG/D LONG TERM USE
     Route: 048
  26. ISOSORBIDE DINITRATE, COMBINATIONS [Concomitant]
     Dosage: 1 TAB, BID
     Route: 048
  27. METOLAZONE [Concomitant]
     Dosage: UNK
     Dates: end: 20060224

REACTIONS (13)
  - RENAL INJURY [None]
  - ANHEDONIA [None]
  - RENAL FAILURE [None]
  - DEATH [None]
  - EMOTIONAL DISTRESS [None]
  - STRESS [None]
  - INJURY [None]
  - UNEVALUABLE EVENT [None]
  - MULTI-ORGAN FAILURE [None]
  - ANXIETY [None]
  - RENAL IMPAIRMENT [None]
  - FEAR [None]
  - PAIN [None]
